FAERS Safety Report 14478285 (Version 3)
Quarter: 2018Q2

REPORT INFORMATION
  Report Type: Spontaneous
  Country: NL (occurrence: NL)
  Receive Date: 20180202
  Receipt Date: 20180524
  Transmission Date: 20180711
  Serious: Yes (Other)
  Sender: FDA-Public Use
  Company Number: NL-TEVA-2018-NL-852273

PATIENT
  Age: 53 Year
  Sex: Male

DRUGS (1)
  1. PAROXETINE PCH [Suspect]
     Active Substance: PAROXETINE
     Indication: DEPRESSION
     Dosage: 5 MILLIGRAM DAILY; STARTED 8 YEARS AGO, STOPPED 4 YEARS AGO
     Route: 048
     Dates: start: 2010, end: 2014

REACTIONS (16)
  - Cardiac disorder [Not Recovered/Not Resolved]
  - Fall [Unknown]
  - Depressed mood [Unknown]
  - Hypertension [Not Recovered/Not Resolved]
  - Blood disorder [Not Recovered/Not Resolved]
  - Chest discomfort [Not Recovered/Not Resolved]
  - Atrial fibrillation [Not Recovered/Not Resolved]
  - Arrhythmia [Not Recovered/Not Resolved]
  - Poor quality sleep [Not Recovered/Not Resolved]
  - Disturbance in attention [Not Recovered/Not Resolved]
  - Respiratory disorder [Unknown]
  - Headache [Unknown]
  - Syncope [Unknown]
  - Blindness unilateral [Not Recovered/Not Resolved]
  - Nausea [Not Recovered/Not Resolved]
  - Loss of employment [Unknown]

NARRATIVE: CASE EVENT DATE: 20170910
